FAERS Safety Report 9408782 (Version 2)
Quarter: 2013Q3

REPORT INFORMATION
  Report Type: Spontaneous
  Country: US (occurrence: US)
  Receive Date: 20130719
  Receipt Date: 20130806
  Transmission Date: 20140515
  Serious: Yes (Other)
  Sender: FDA-Public Use
  Company Number: US-AMGEN-USASP2013049422

PATIENT
  Age: 35 Year
  Sex: Female
  Weight: 87.08 kg

DRUGS (3)
  1. ENBREL [Suspect]
     Indication: PSORIATIC ARTHROPATHY
     Dosage: 50 MG, QWK
     Route: 065
     Dates: start: 20070201
  2. PRENATAL                           /00231801/ [Concomitant]
     Dosage: 1 UNK, QD
  3. VITAMIN D3 [Concomitant]
     Dosage: 2000 IU, QD

REACTIONS (1)
  - Ectopic pregnancy [Recovered/Resolved]
